FAERS Safety Report 20551820 (Version 1)
Quarter: 2022Q1

REPORT INFORMATION
  Report Type: Spontaneous
  Country: US (occurrence: US)
  Receive Date: 20220304
  Receipt Date: 20220304
  Transmission Date: 20220423
  Serious: No
  Sender: FDA-Public Use
  Company Number: US-CELGENE-USA-20220300342

PATIENT
  Sex: Male

DRUGS (2)
  1. POMALYST [Suspect]
     Active Substance: POMALIDOMIDE
     Indication: Plasma cell myeloma
     Dosage: 3 MG
     Route: 048
     Dates: start: 202007
  2. POMALYST [Suspect]
     Active Substance: POMALIDOMIDE
     Dosage: 2MG
     Route: 048
     Dates: start: 202108, end: 20220228

REACTIONS (1)
  - Plasma cell myeloma [Unknown]
